FAERS Safety Report 15842175 (Version 1)
Quarter: 2018Q4

REPORT INFORMATION
  Report Type: Spontaneous
  Country: US (occurrence: US)
  Receive Date: 20181226
  Receipt Date: 20181226
  Transmission Date: 20190205
  Serious: No
  Sender: FDA-Public Use
  Company Number: None

PATIENT
  Age: 52 Year
  Sex: Female
  Weight: 73.94 kg

DRUGS (4)
  1. BENLYSTA [Suspect]
     Active Substance: BELIMUMAB
     Indication: SYSTEMIC LUPUS ERYTHEMATOSUS
     Dosage: INFUSE 709.09 MG VIA INTRAVENOUSLY OVER 1 HR ON DAY 1, DAY 14 AS DIRECTED
     Route: 042
     Dates: start: 201808
  2. BENLYSTA [Suspect]
     Active Substance: BELIMUMAB
     Indication: RHEUMATOID ARTHRITIS
     Dosage: INFUSE 742.73MG INTRAVENOUSLY EVERY 28 DAYS AS DIRECTED
     Route: 042
     Dates: start: 201808
  3. BENLYSTA [Suspect]
     Active Substance: BELIMUMAB
     Indication: RHEUMATOID ARTHRITIS
     Dosage: INFUSE 709.09 MG VIA INTRAVENOUSLY OVER 1 HR ON DAY 1, DAY 14 AS DIRECTED
     Route: 042
     Dates: start: 201808
  4. BENLYSTA [Suspect]
     Active Substance: BELIMUMAB
     Indication: SYSTEMIC LUPUS ERYTHEMATOSUS
     Dosage: INFUSE 742.73MG INTRAVENOUSLY EVERY 28 DAYS AS DIRECTED
     Route: 042
     Dates: start: 201808

REACTIONS (1)
  - Pneumonia [None]
